FAERS Safety Report 7363274-3 (Version None)
Quarter: 2011Q1

REPORT INFORMATION
  Report Type: 
  Country: None (occurrence: None)
  Receive Date: 20110321
  Receipt Date: 20110308
  Transmission Date: 20110831
  Serious: Yes (Hospitalization)
  Sender: FDA-Public Use
  Company Number: US-JNJFOC-20070601988

PATIENT
  Sex: Male
  Weight: 67 kg

DRUGS (5)
  1. INFLIXIMAB [Suspect]
     Route: 042
  2. PREDNISONE [Concomitant]
  3. MERCAPTOPURINE [Concomitant]
  4. INFLIXIMAB [Suspect]
     Indication: COLITIS ULCERATIVE
     Route: 042
  5. INFLIXIMAB [Suspect]
     Route: 042

REACTIONS (6)
  - ACUTE ABDOMEN [None]
  - NO THERAPEUTIC RESPONSE [None]
  - POUCHITIS [None]
  - COLOSTOMY CLOSURE [None]
  - POSTOPERATIVE ILEUS [None]
  - COLITIS ULCERATIVE [None]
